FAERS Safety Report 7527430-3 (Version None)
Quarter: 2011Q2

REPORT INFORMATION
  Report Type: 
  Country: None (occurrence: None)
  Receive Date: 20110603
  Receipt Date: 20110518
  Transmission Date: 20111010
  Serious: Yes (Hospitalization, Other)
  Sender: FDA-Public Use
  Company Number: JPI-P-015114

PATIENT
  Age: 51 Year
  Sex: Female

DRUGS (3)
  1. XYREM [Suspect]
     Indication: PRODUCT USED FOR UNKNOWN INDICATION
     Dosage: 3 GM (1.5 GM, 2 IN 1 D), ORAL;ORAL;  8 GM (4 GM, 2 IN 1 ) ORAL;
     Route: 048
     Dates: start: 20041028
  2. XYREM [Suspect]
     Indication: PRODUCT USED FOR UNKNOWN INDICATION
     Dosage: 3 GM (1.5 GM, 2 IN 1 D), ORAL;ORAL;  8 GM (4 GM, 2 IN 1 ) ORAL;
     Route: 048
     Dates: start: 20041215
  3. XYREM [Suspect]
     Indication: PRODUCT USED FOR UNKNOWN INDICATION
     Dosage: 3 GM (1.5 GM, 2 IN 1 D), ORAL;ORAL;  8 GM (4 GM, 2 IN 1 ) ORAL;
     Route: 048
     Dates: start: 20040101, end: 20040101

REACTIONS (1)
  - BACK DISORDER [None]
